FAERS Safety Report 25701147 (Version 1)
Quarter: 2025Q3

REPORT INFORMATION
  Report Type: Spontaneous
  Country: EU (occurrence: EU)
  Receive Date: 20250819
  Receipt Date: 20250819
  Transmission Date: 20251020
  Serious: Yes (Hospitalization)
  Sender: MYLAN
  Company Number: EU-MYLANLABS-2025M1068904

PATIENT
  Age: 45 Year
  Sex: Female

DRUGS (4)
  1. TACROLIMUS [Interacting]
     Active Substance: TACROLIMUS
     Indication: Immunosuppressant drug therapy
  2. TACROLIMUS [Interacting]
     Active Substance: TACROLIMUS
  3. FOSFOMYCIN [Interacting]
     Active Substance: FOSFOMYCIN
     Indication: Prophylaxis urinary tract infection
  4. FOSFOMYCIN [Interacting]
     Active Substance: FOSFOMYCIN
     Indication: Prophylaxis

REACTIONS (3)
  - Renal tubular acidosis [Recovered/Resolved]
  - Off label use [Unknown]
  - Drug interaction [Recovered/Resolved]
